FAERS Safety Report 8803760 (Version 2)
Quarter: 2012Q4

REPORT INFORMATION
  Report Type: 
  Country: BR (occurrence: BR)
  Receive Date: 20120924
  Receipt Date: 20121009
  Transmission Date: 20130627
  Serious: Yes (Other)
  Sender: FDA-Public Use
  Company Number: BR-AMGEN-BRASP2008000216

PATIENT
  Sex: Male

DRUGS (1)
  1. ENBREL [Suspect]
     Indication: PRODUCT USED FOR UNKNOWN INDICATION
     Dosage: 50 mg, 1x/week
     Dates: start: 2010

REACTIONS (4)
  - Drug dispensing error [Unknown]
  - Immunosuppression [Unknown]
  - Gastroenteritis rotavirus [Unknown]
  - Herpes zoster [Unknown]
